FAERS Safety Report 21737934 (Version 1)
Quarter: 2022Q4

REPORT INFORMATION
  Report Type: Spontaneous
  Country: US (occurrence: US)
  Receive Date: 20221216
  Receipt Date: 20221216
  Transmission Date: 20230112
  Serious: No
  Sender: FDA-Public Use
  Company Number: US-ENDO PHARMACEUTICALS INC-2022-005201

PATIENT
  Sex: Male
  Weight: 79.365 kg

DRUGS (4)
  1. XIAFLEX [Suspect]
     Active Substance: COLLAGENASE CLOSTRIDIUM HISTOLYTICUM
     Indication: Peyronie^s disease
     Dosage: UNK UNKNOWN, UNKNOWN, (CYCLE ONE, INJECTION ONE)
     Route: 065
     Dates: start: 20220607
  2. XIAFLEX [Suspect]
     Active Substance: COLLAGENASE CLOSTRIDIUM HISTOLYTICUM
     Dosage: UNK UNKNOWN, UNKNOWN, (CYCLE ONE, INJECTION TWO)
     Route: 065
     Dates: start: 20220610
  3. XIAFLEX [Suspect]
     Active Substance: COLLAGENASE CLOSTRIDIUM HISTOLYTICUM
     Dosage: UNK UNKNOWN, UNKNOWN, (CYCLE TWO, INJECTION ONE)
     Route: 065
     Dates: start: 20220726
  4. XIAFLEX [Suspect]
     Active Substance: COLLAGENASE CLOSTRIDIUM HISTOLYTICUM
     Dosage: UNK UNKNOWN, UNKNOWN, (CYCLE TWO, INJECTION TWO)
     Route: 065
     Dates: start: 20220728

REACTIONS (2)
  - Scrotal inflammation [Not Recovered/Not Resolved]
  - Scrotal swelling [Not Recovered/Not Resolved]

NARRATIVE: CASE EVENT DATE: 20220101
